FAERS Safety Report 8762414 (Version 1)
Quarter: 2012Q4

REPORT INFORMATION
  Report Type: 
  Country: US (occurrence: US)
  Receive Date: 20120829
  Receipt Date: 20120829
  Transmission Date: 20130627
  Serious: No
  Sender: FDA-Public Use
  Company Number: US-PFIZER INC-2012209966

PATIENT
  Age: 69 Year
  Sex: Male
  Weight: 92.97 kg

DRUGS (2)
  1. AMLODIPINE BESILATE [Suspect]
     Indication: HYPERTENSION
     Dosage: 5 mg, daily
     Route: 048
     Dates: start: 20120803
  2. ATACAND [Concomitant]
     Indication: HYPERTENSION
     Dosage: 32 mg, daily

REACTIONS (1)
  - Breast cyst [Not Recovered/Not Resolved]
